FAERS Safety Report 13576929 (Version 1)
Quarter: 2017Q2

REPORT INFORMATION
  Report Type: Report from Study
  Country: US (occurrence: US)
  Receive Date: 20170524
  Receipt Date: 20170524
  Transmission Date: 20170830
  Serious: Yes (Other)
  Sender: FDA-Public Use
  Company Number: US-JNJFOC-20170518280

PATIENT
  Sex: Male

DRUGS (5)
  1. DACTOLISIB [Suspect]
     Active Substance: DACTOLISIB
     Indication: PROSTATE CANCER METASTATIC
     Route: 048
  2. PREDNISONE. [Suspect]
     Active Substance: PREDNISONE
     Indication: PROSTATE CANCER METASTATIC
     Route: 065
  3. ZYTIGA [Suspect]
     Active Substance: ABIRATERONE ACETATE
     Indication: PROSTATE CANCER METASTATIC
     Route: 048
  4. DACTOLISIB [Suspect]
     Active Substance: DACTOLISIB
     Indication: PROSTATE CANCER METASTATIC
     Route: 048
  5. DACTOLISIB [Suspect]
     Active Substance: DACTOLISIB
     Indication: PROSTATE CANCER METASTATIC
     Route: 048

REACTIONS (25)
  - Hypotension [Unknown]
  - Anal inflammation [Unknown]
  - Epistaxis [Unknown]
  - Diarrhoea [Unknown]
  - Nausea [Unknown]
  - Weight decreased [Unknown]
  - Dyspepsia [Unknown]
  - Oropharyngeal pain [Unknown]
  - Fatigue [Unknown]
  - Vomiting [Unknown]
  - Muscular weakness [Unknown]
  - Haemoptysis [Unknown]
  - Pneumonitis [Unknown]
  - Photosensitivity reaction [Unknown]
  - Amylase increased [Unknown]
  - Stomatitis [Unknown]
  - Abdominal distension [Unknown]
  - Rash maculo-papular [Unknown]
  - Malaise [Unknown]
  - Dysgeusia [Unknown]
  - Skin hyperpigmentation [Unknown]
  - Decreased appetite [Unknown]
  - Musculoskeletal pain [Unknown]
  - Platelet count decreased [Unknown]
  - Hypocalcaemia [Unknown]
